FAERS Safety Report 25186796 (Version 2)
Quarter: 2025Q2

REPORT INFORMATION
  Report Type: Spontaneous
  Country: US (occurrence: US)
  Receive Date: 20250411
  Receipt Date: 20250421
  Transmission Date: 20250716
  Serious: No
  Sender: ELI LILLY AND COMPANY
  Company Number: US-ELI_LILLY_AND_COMPANY-US202504006863

PATIENT
  Age: 52 Year
  Sex: Female
  Weight: 59.864 kg

DRUGS (3)
  1. ZEPBOUND [Suspect]
     Active Substance: TIRZEPATIDE
     Indication: Weight control
     Dosage: 2.5 MG, WEEKLY (1/W)
     Route: 058
     Dates: start: 20250319
  2. GABAPENTIN [Concomitant]
     Active Substance: GABAPENTIN
     Indication: Limb discomfort
     Route: 065
  3. GABAPENTIN [Concomitant]
     Active Substance: GABAPENTIN
     Indication: Pain in extremity
     Route: 065

REACTIONS (3)
  - Cataract [Not Recovered/Not Resolved]
  - Astigmatism [Not Recovered/Not Resolved]
  - Laboratory test abnormal [Not Recovered/Not Resolved]
